FAERS Safety Report 9956429 (Version 2)
Quarter: 2014Q1

REPORT INFORMATION
  Report Type: Report from Study
  Country: US (occurrence: US)
  Receive Date: 20140304
  Receipt Date: 20140304
  Transmission Date: 20141002
  Serious: Yes (Hospitalization)
  Sender: FDA-Public Use
  Company Number: US-ABBVIE-12P-163-0892520-00

PATIENT
  Sex: Female
  Weight: 67.19 kg

DRUGS (12)
  1. HUMIRA 40 MG/0.8 ML PEN [Suspect]
     Indication: RHEUMATOID ARTHRITIS
     Route: 058
     Dates: start: 201103, end: 201104
  2. HUMIRA 40 MG/0.8 ML PEN [Suspect]
     Route: 058
     Dates: start: 201202
  3. METHOTREXATE [Concomitant]
     Indication: RHEUMATOID ARTHRITIS
     Dates: end: 201108
  4. SYNTHROID [Concomitant]
     Indication: HYPOTHYROIDISM
  5. EXFORGE [Concomitant]
     Indication: HYPERTENSION
     Dosage: 5/160 MG TWICE DAILY
  6. PREDNISONE [Concomitant]
     Indication: RHEUMATOID ARTHRITIS
     Dosage: 5 MG ONCE DAILY
  7. CALTRATE [Concomitant]
     Indication: MINERAL SUPPLEMENTATION
  8. VITAMIN D [Concomitant]
     Indication: VITAMIN SUPPLEMENTATION
  9. VITAMIN B COMPLEX [Concomitant]
     Indication: VITAMIN SUPPLEMENTATION
  10. UNKNOWN VITAMINS [Concomitant]
     Indication: VITAMIN SUPPLEMENTATION
  11. IBUPROFEN [Concomitant]
     Indication: RHEUMATOID ARTHRITIS
  12. ADVAIR [Concomitant]
     Indication: PRODUCT USED FOR UNKNOWN INDICATION
     Dosage: INHALER TWICE DAILY

REACTIONS (6)
  - Asthma [Unknown]
  - Atypical pneumonia [Recovered/Resolved]
  - Diarrhoea [Not Recovered/Not Resolved]
  - Cow^s milk intolerance [Not Recovered/Not Resolved]
  - Pneumonia [Recovered/Resolved]
  - Cough [Unknown]
